FAERS Safety Report 16712340 (Version 2)
Quarter: 2019Q3

REPORT INFORMATION
  Report Type: Spontaneous
  Country: BR (occurrence: BR)
  Receive Date: 20190816
  Receipt Date: 20190930
  Transmission Date: 20191004
  Serious: Yes (Hospitalization, Other)
  Sender: FDA-Public Use
  Company Number: PHHY2019BR188496

PATIENT
  Age: 74 Year
  Sex: Male

DRUGS (2)
  1. VOTRIENT [Suspect]
     Active Substance: PAZOPANIB HYDROCHLORIDE
     Dosage: 800 MG/DL, UNK
     Route: 065
     Dates: start: 20190218, end: 20190312
  2. VOTRIENT [Suspect]
     Active Substance: PAZOPANIB HYDROCHLORIDE
     Indication: RENAL CANCER
     Dosage: 400 MG/DL, UNK
     Route: 065
     Dates: start: 20190203

REACTIONS (6)
  - Fatigue [Recovering/Resolving]
  - Ventricular dysfunction [Recovering/Resolving]
  - Supraventricular tachycardia [Unknown]
  - Dyspnoea [Unknown]
  - Malaise [Unknown]
  - Decreased appetite [Recovering/Resolving]

NARRATIVE: CASE EVENT DATE: 20190308
